FAERS Safety Report 16189171 (Version 1)
Quarter: 2019Q2

REPORT INFORMATION
  Report Type: Spontaneous
  Country: US (occurrence: US)
  Receive Date: 20190411
  Receipt Date: 20190411
  Transmission Date: 20190711
  Serious: Yes (Hospitalization, Other)
  Sender: FDA-Public Use
  Company Number: None

PATIENT
  Age: 70 Year
  Sex: Female
  Weight: 72.5 kg

DRUGS (10)
  1. ONDANSETRON [Concomitant]
     Active Substance: ONDANSETRON
     Dates: start: 20190220, end: 20190313
  2. TRAMADOL. [Concomitant]
     Active Substance: TRAMADOL
     Dates: start: 20190219, end: 20190223
  3. YESCARTA [Suspect]
     Active Substance: AXICABTAGENE CILOLEUCEL
     Indication: NON-HODGKIN^S LYMPHOMA
     Dosage: ?          OTHER FREQUENCY:ONCE;?
     Route: 041
     Dates: start: 20190214
  4. DOCUSATE [Concomitant]
     Active Substance: DOCUSATE
     Dates: start: 20190226, end: 20190228
  5. MEROPENEM IV [Concomitant]
     Dates: start: 20190219, end: 20190302
  6. SIMETHICONE (DIMETHICONE) [Concomitant]
     Active Substance: DIMETHICONE
     Dates: start: 20190219, end: 20190228
  7. PANTOPRAZOLE [Concomitant]
     Active Substance: PANTOPRAZOLE
     Dates: start: 20190214, end: 20190313
  8. LIDOCAINE. [Concomitant]
     Active Substance: LIDOCAINE
     Dates: start: 20190219, end: 20190228
  9. MAGNESIUM PROTEIN COMPLEX [Concomitant]
     Dates: start: 20190220, end: 20190321
  10. FLUCONAZOLE. [Concomitant]
     Active Substance: FLUCONAZOLE
     Dates: start: 20190224, end: 20190302

REACTIONS (2)
  - Cytokine release syndrome [None]
  - Unevaluable event [None]

NARRATIVE: CASE EVENT DATE: 20190220
